FAERS Safety Report 6146965-1 (Version None)
Quarter: 2009Q2

REPORT INFORMATION
  Report Type: 
  Country: None (occurrence: None)
  Receive Date: 20090403
  Receipt Date: 20090326
  Transmission Date: 20091009
  Serious: Yes (Hospitalization)
  Sender: FDA-Public Use
  Company Number: 2009AL001808

PATIENT
  Age: 44 Year
  Sex: Male

DRUGS (2)
  1. IBUPROFEN TABLETS [Suspect]
     Indication: BACK PAIN
     Dosage: 400 MG; TID; PO
     Route: 048
     Dates: start: 20090226, end: 20090302
  2. PARACETAMOL [Concomitant]

REACTIONS (2)
  - FAECES DISCOLOURED [None]
  - VOMITING [None]
